FAERS Safety Report 6093756-6 (Version None)
Quarter: 2009Q1

REPORT INFORMATION
  Report Type: 
  Country: None (occurrence: None)
  Receive Date: 20090223
  Receipt Date: 20090223
  Transmission Date: 20090719
  Serious: Yes (Other)
  Sender: FDA-Public Use
  Company Number: None

PATIENT
  Age: 77 Year
  Sex: Male
  Weight: 93.5 kg

DRUGS (5)
  1. DEXMEDETOMIDINE [Suspect]
     Dosage: 0.3 MICROGRAM/KG/HR IV DRIP
     Route: 041
     Dates: start: 20090202, end: 20090217
  2. FENTANYL [Concomitant]
  3. HEPARIN [Concomitant]
  4. INSULIN [Concomitant]
  5. ALBUMIN (HUMAN) [Concomitant]

REACTIONS (1)
  - HYPOTENSION [None]
